FAERS Safety Report 19830699 (Version 8)
Quarter: 2022Q2

REPORT INFORMATION
  Report Type: Spontaneous
  Country: US (occurrence: US)
  Receive Date: 20210915
  Receipt Date: 20220513
  Transmission Date: 20220721
  Serious: No
  Sender: FDA-Public Use
  Company Number: US-GLAXOSMITHKLINE-US2021192529

PATIENT
  Age: 50 Year
  Sex: Female

DRUGS (5)
  1. ZEJULA [Suspect]
     Active Substance: NIRAPARIB
     Indication: Ovarian cancer
     Dosage: 300 MG, QD
     Route: 048
     Dates: start: 20210819
  2. ZEJULA [Suspect]
     Active Substance: NIRAPARIB
     Dosage: 300 MG, QD, PM
  3. ZEJULA [Suspect]
     Active Substance: NIRAPARIB
     Dosage: 300 MG, QD
  4. ZEJULA [Suspect]
     Active Substance: NIRAPARIB
     Dosage: 300 MG, QD
  5. ZEJULA [Suspect]
     Active Substance: NIRAPARIB
     Dosage: 300 MG, QD

REACTIONS (13)
  - Nausea [Unknown]
  - Headache [Unknown]
  - Constipation [Unknown]
  - Asthenia [Unknown]
  - Hepatomegaly [Unknown]
  - White blood cell count decreased [Unknown]
  - Hypertension [Recovering/Resolving]
  - Skin reaction [Unknown]
  - Pigmentation disorder [Not Recovered/Not Resolved]
  - Dry skin [Unknown]
  - Vertigo [Unknown]
  - Weight increased [Unknown]
  - Pulmonary mass [Unknown]

NARRATIVE: CASE EVENT DATE: 20210801
